FAERS Safety Report 4514095-8 (Version None)
Quarter: 2004Q4

REPORT INFORMATION
  Report Type: 
  Country: None (occurrence: None)
  Receive Date: 20041124
  Receipt Date: 20041108
  Transmission Date: 20050328
  Serious: Yes (Hospitalization)
  Sender: FDA-Public Use
  Company Number: US_0411107928

PATIENT
  Age: 57 Year
  Sex: Female
  Weight: 75 kg

DRUGS (13)
  1. HUMATROPE [Suspect]
     Indication: BLOOD GROWTH HORMONE DECREASED
     Dosage: 5 MG/1 DAY
     Dates: start: 19971001
  2. ZOCOR (SIMVASTATIN RATIOPHARM) [Concomitant]
  3. LEVOXYL (LEVOTHYR9XINE SODIUM) [Concomitant]
  4. HYDROCHLOROTHIAZIDE [Concomitant]
  5. PREMPRO [Concomitant]
  6. BETOPIC (BETAMETHASONE) [Concomitant]
  7. HYDROCORTISONE [Concomitant]
  8. ASPIRIN [Concomitant]
  9. MULTI-VITAMIN [Concomitant]
  10. VITAMIN  C [Concomitant]
  11. CALCIUM [Concomitant]
  12. NATURAL NUTRITION ECHINACEA COMPLEX (ECHINACEA SPP.) [Concomitant]
  13. BENADRYL [Concomitant]

REACTIONS (1)
  - CEREBROVASCULAR ACCIDENT [None]
